FAERS Safety Report 24099543 (Version 1)
Quarter: 2024Q3

REPORT INFORMATION
  Report Type: Spontaneous
  Country: US (occurrence: US)
  Receive Date: 20240716
  Receipt Date: 20240716
  Transmission Date: 20241016
  Serious: No
  Sender: NOVO NORDISK
  Company Number: US-NOVOPROD-1210840

PATIENT
  Age: 79 Year
  Sex: Male
  Weight: 223 kg

DRUGS (1)
  1. OZEMPIC [Suspect]
     Active Substance: SEMAGLUTIDE
     Indication: Type 2 diabetes mellitus
     Dosage: 0.25/0.50 MG
     Route: 058
     Dates: start: 20240419

REACTIONS (4)
  - Abdominal distension [Unknown]
  - Wrong technique in product usage process [Unknown]
  - Product communication issue [Unknown]
  - Product label confusion [Unknown]

NARRATIVE: CASE EVENT DATE: 20240419
